FAERS Safety Report 15470294 (Version 1)
Quarter: 2018Q4

REPORT INFORMATION
  Report Type: Spontaneous
  Country: US (occurrence: US)
  Receive Date: 20181005
  Receipt Date: 20181005
  Transmission Date: 20190205
  Serious: Yes (Hospitalization, Other)
  Sender: FDA-Public Use
  Company Number: US-BAUSCH-BL-2018-026888

PATIENT
  Sex: Male

DRUGS (1)
  1. OCEAN SALINE NASAL SPRAY [Suspect]
     Active Substance: SODIUM CHLORIDE
     Indication: PRODUCT USED FOR UNKNOWN INDICATION
     Route: 065

REACTIONS (5)
  - Lung infection [Unknown]
  - Pneumothorax [Unknown]
  - Wrong technique in product usage process [Unknown]
  - Product use issue [Unknown]
  - Bacterial infection [Unknown]

NARRATIVE: CASE EVENT DATE: 201805
